FAERS Safety Report 10304271 (Version 1)
Quarter: 2014Q3

REPORT INFORMATION
  Report Type: Spontaneous
  Country: TR (occurrence: TR)
  Receive Date: 20140714
  Receipt Date: 20140714
  Transmission Date: 20150326
  Serious: Yes (Life-Threatening)
  Sender: FDA-Public Use
  Company Number: PHHY2014TR085258

PATIENT
  Age: 66 Year
  Sex: Female
  Weight: 79 kg

DRUGS (1)
  1. EBETAXEL EBEWE [Suspect]
     Active Substance: PACLITAXEL
     Dosage: 6 MG/ML, UNK
     Route: 042
     Dates: start: 20140610, end: 20140610

REACTIONS (4)
  - Throat irritation [Recovered/Resolved]
  - Rash generalised [Recovered/Resolved]
  - Pain [Recovered/Resolved]
  - Respiratory distress [Recovered/Resolved]

NARRATIVE: CASE EVENT DATE: 20140610
